FAERS Safety Report 4402104-6 (Version None)
Quarter: 2004Q3

REPORT INFORMATION
  Report Type: 
  Country: None (occurrence: None)
  Receive Date: 20040720
  Receipt Date: 20040712
  Transmission Date: 20050211
  Serious: Yes (Other)
  Sender: FDA-Public Use
  Company Number: PHBS2004FR09382

PATIENT
  Age: 66 Year
  Sex: Female

DRUGS (6)
  1. CARBAMAZEPINE [Suspect]
     Route: 065
  2. HYDROXYZINE [Suspect]
     Route: 065
  3. ACEPROMETAZINE W/MEPROBAMATE [Suspect]
     Route: 065
  4. ZOLPIDEM TARTRATE [Suspect]
     Route: 065
  5. CLONAZEPAM [Suspect]
     Route: 065
  6. LEVOTHYROXINE SODIUM [Concomitant]

REACTIONS (5)
  - ANXIETY [None]
  - BLOOD CREATINE PHOSPHOKINASE INCREASED [None]
  - DYSKINESIA [None]
  - HYPERHIDROSIS [None]
  - VOMITING [None]
